FAERS Safety Report 6511329-5 (Version None)
Quarter: 2009Q4

REPORT INFORMATION
  Report Type: 
  Country: None (occurrence: None)
  Receive Date: 20091222
  Receipt Date: 20090330
  Transmission Date: 20100525
  Serious: No
  Sender: FDA-Public Use
  Company Number: US-ASTRAZENECA-2009UW08022

PATIENT
  Sex: Female
  Weight: 76.7 kg

DRUGS (11)
  1. CRESTOR [Suspect]
     Dosage: 5 MG
     Route: 048
     Dates: start: 20090101
  2. COREG [Concomitant]
  3. ATACAND [Concomitant]
  4. LASIX [Concomitant]
  5. POTASSIUM [Concomitant]
  6. ASPIRIN [Concomitant]
  7. DIGOXIN [Concomitant]
  8. CALCIUM [Concomitant]
  9. MAGNESIUM [Concomitant]
  10. ASCORBIC ACID [Concomitant]
  11. MULTI-VITAMIN [Concomitant]

REACTIONS (2)
  - ASTHENIA [None]
  - MUSCLE SPASMS [None]
